FAERS Safety Report 7637828-0 (Version None)
Quarter: 2011Q3

REPORT INFORMATION
  Report Type: 
  Country: None (occurrence: None)
  Receive Date: 20110720
  Receipt Date: 20110707
  Transmission Date: 20111222
  Serious: Yes (Hospitalization)
  Sender: FDA-Public Use
  Company Number: AEUSA201100177

PATIENT
  Age: 1 Day
  Sex: Male
  Weight: 2.7216 kg

DRUGS (1)
  1. HYPERRHO [Suspect]
     Indication: PROPHYLAXIS AGAINST RH ISOIMMUNISATION
     Dosage: 1500 IU;1X;IM
     Route: 030
     Dates: start: 20110318, end: 20110318

REACTIONS (4)
  - PREMATURE BABY [None]
  - MATERNAL DRUGS AFFECTING FOETUS [None]
  - RHESUS HAEMOLYTIC DISEASE OF NEWBORN [None]
  - RHESUS INCOMPATIBILITY [None]
